FAERS Safety Report 4298836-3 (Version None)
Quarter: 2004Q1

REPORT INFORMATION
  Report Type: 
  Country: None (occurrence: None)
  Receive Date: 20040126
  Receipt Date: 20031020
  Transmission Date: 20041129
  Serious: No
  Sender: FDA-Public Use
  Company Number: USA031050337

PATIENT
  Age: 52 Year
  Sex: Female
  Weight: 47 kg

DRUGS (3)
  1. STRATTERA [Suspect]
     Dosage: 40 MG/DAY
     Dates: start: 20031016
  2. DIAZEPAM [Concomitant]
  3. AMBIEN [Concomitant]

REACTIONS (4)
  - CONTUSION [None]
  - ENERGY INCREASED [None]
  - INSOMNIA [None]
  - PAIN [None]
